FAERS Safety Report 14227120 (Version 1)
Quarter: 2017Q4

REPORT INFORMATION
  Report Type: Spontaneous
  Country: US (occurrence: None)
  Receive Date: 20171127
  Receipt Date: 20171127
  Transmission Date: 20180321
  Serious: Yes (Death, Life-Threatening)
  Sender: FDA-Public Use
  Company Number: None

PATIENT
  Age: 84 Year
  Sex: Female
  Weight: 66.68 kg

DRUGS (14)
  1. LEVOTHYROXINE. [Concomitant]
     Active Substance: LEVOTHYROXINE
  2. PROTONIX [Concomitant]
     Active Substance: PANTOPRAZOLE SODIUM
  3. ACETYLCYSTEINE MIST [Concomitant]
  4. CLONIDINE. [Concomitant]
     Active Substance: CLONIDINE
  5. ONDANSETRON [Concomitant]
     Active Substance: ONDANSETRON
  6. MIRALAX [Concomitant]
     Active Substance: POLYETHYLENE GLYCOL 3350
  7. PROBIOTIC SUPPLEMENT [Concomitant]
  8. ALBUTEROL/IPRATROPIUM VIA NEBULIZER [Concomitant]
  9. SENNA [Concomitant]
     Active Substance: SENNA LEAF\SENNOSIDES\SENNOSIDES A AND B
  10. DEXAMETHASONE. [Concomitant]
     Active Substance: DEXAMETHASONE
  11. IV LINEZOLID 600 MG [Suspect]
     Active Substance: LINEZOLID
     Indication: PNEUMONIA NECROTISING
     Route: 042
     Dates: start: 20171010
  12. DILTIAZEM ER [Concomitant]
     Active Substance: DILTIAZEM
  13. NYSTATIN SUSPENSION [Concomitant]
     Active Substance: NYSTATIN
  14. IV FLUIDS D5-1/2 NORMAL SALINE [Concomitant]

REACTIONS (2)
  - Pancytopenia [None]
  - Asthenia [None]

NARRATIVE: CASE EVENT DATE: 20171010
